FAERS Safety Report 14682252 (Version 1)
Quarter: 2018Q1

REPORT INFORMATION
  Report Type: Spontaneous
  Country: US (occurrence: US)
  Receive Date: 20180326
  Receipt Date: 20180326
  Transmission Date: 20180509
  Serious: No
  Sender: FDA-Public Use
  Company Number: US-SUNOVION-2018SUN000938

PATIENT
  Sex: Male
  Weight: 102.4 kg

DRUGS (4)
  1. LATUDA [Suspect]
     Active Substance: LURASIDONE HYDROCHLORIDE
     Dosage: 60 MG, UNK
  2. LATUDA [Suspect]
     Active Substance: LURASIDONE HYDROCHLORIDE
     Indication: BIPOLAR DISORDER
     Dosage: 60 MG, UNK
     Route: 048
     Dates: start: 201802, end: 201803
  3. VALIUM [Concomitant]
     Active Substance: DIAZEPAM
     Dosage: 10 MG, TID
     Route: 048
  4. VENLAFAXINE XR [Concomitant]
     Active Substance: VENLAFAXINE HYDROCHLORIDE
     Dosage: 150 MG, QD
     Route: 048

REACTIONS (3)
  - Thinking abnormal [Recovered/Resolved]
  - Abnormal behaviour [Recovered/Resolved]
  - Anxiety [Recovered/Resolved]
